FAERS Safety Report 6161698-3 (Version None)
Quarter: 2009Q2

REPORT INFORMATION
  Report Type: 
  Country: None (occurrence: None)
  Receive Date: 20090421
  Receipt Date: 20090409
  Transmission Date: 20091009
  Serious: Yes (Other)
  Sender: FDA-Public Use
  Company Number: GB-TEVA-191240ISR

PATIENT
  Age: 32 Year
  Sex: Male

DRUGS (2)
  1. CETIRIZINE [Suspect]
     Indication: SEASONAL ALLERGY
     Dates: start: 20080701
  2. CETIRIZINE [Suspect]
     Indication: URTICARIA

REACTIONS (1)
  - CARDIOMYOPATHY [None]
